FAERS Safety Report 23962472 (Version 2)
Quarter: 2024Q4

REPORT INFORMATION
  Report Type: Spontaneous
  Country: US (occurrence: US)
  Receive Date: 20240611
  Receipt Date: 20241231
  Transmission Date: 20250114
  Serious: No
  Sender: PFIZER
  Company Number: US-PFIZER INC-PV202300199960

PATIENT
  Age: 69 Year
  Sex: Female

DRUGS (4)
  1. BRAFTOVI [Suspect]
     Active Substance: ENCORAFENIB
     Indication: Metastatic malignant melanoma
     Dosage: 450 MG, DAILY
     Route: 048
     Dates: start: 201811
  2. BRAFTOVI [Suspect]
     Active Substance: ENCORAFENIB
     Indication: Invasive papillary breast carcinoma
     Dosage: 300 MG, DAILY
     Route: 048
  3. MEKTOVI [Suspect]
     Active Substance: BINIMETINIB
     Indication: Metastatic malignant melanoma
     Dosage: 45 MG, 2X/DAY
     Dates: start: 201811
  4. MEKTOVI [Suspect]
     Active Substance: BINIMETINIB
     Indication: Invasive papillary breast carcinoma
     Dosage: 30 MG, 2X/DAY (30 MG, EVERY 12 HOURS)
     Route: 048

REACTIONS (2)
  - Vomiting [Unknown]
  - Nausea [Unknown]

NARRATIVE: CASE EVENT DATE: 20190101
